FAERS Safety Report 12535345 (Version 2)
Quarter: 2017Q1

REPORT INFORMATION
  Report Type: Spontaneous
  Country: US (occurrence: US)
  Receive Date: 20160707
  Receipt Date: 20170224
  Transmission Date: 20170428
  Serious: No
  Sender: FDA-Public Use
  Company Number: US-TEVA-671850USA

PATIENT
  Age: 58 Year
  Sex: Female

DRUGS (13)
  1. FLEXERIL [Concomitant]
     Active Substance: CYCLOBENZAPRINE HYDROCHLORIDE
  2. LISINOPRIL. [Concomitant]
     Active Substance: LISINOPRIL
  3. PRILOSEC [Concomitant]
     Active Substance: OMEPRAZOLE MAGNESIUM
  4. OMEPRAZOLE. [Concomitant]
     Active Substance: OMEPRAZOLE
  5. COPAXONE [Suspect]
     Active Substance: GLATIRAMER ACETATE
     Indication: MULTIPLE SCLEROSIS
     Route: 058
     Dates: start: 20140205
  6. TYLENOL [Concomitant]
     Active Substance: ACETAMINOPHEN
     Indication: ARTHRITIS
  7. AMPYRA [Concomitant]
     Active Substance: DALFAMPRIDINE
  8. COQ10 [Concomitant]
     Active Substance: UBIDECARENONE
  9. XANAX [Concomitant]
     Active Substance: ALPRAZOLAM
  10. CLAIRITIN [Concomitant]
  11. VITAMIN D3 [Concomitant]
     Active Substance: CHOLECALCIFEROL
  12. OXYBUTYNIN [Concomitant]
     Active Substance: OXYBUTYNIN
  13. GABAPENTIN. [Concomitant]
     Active Substance: GABAPENTIN

REACTIONS (3)
  - Pain in extremity [Unknown]
  - Muscle spasms [Unknown]
  - Fall [Unknown]

NARRATIVE: CASE EVENT DATE: 2016
